FAERS Safety Report 9000141 (Version 2)
Quarter: 2013Q1

REPORT INFORMATION
  Report Type: Report from Study
  Country: US (occurrence: US)
  Receive Date: 20130102
  Receipt Date: 20130108
  Transmission Date: 20140127
  Serious: Yes (Other)
  Sender: FDA-Public Use
  Company Number: US-PFIZER INC-2009156806

PATIENT
  Age: 67 Year
  Sex: Male
  Weight: 74.83 kg

DRUGS (22)
  1. NORVASC [Suspect]
     Indication: BLOOD PRESSURE
     Dosage: 5 MG, 1X/DAY
     Route: 048
  2. ACCUPRIL [Suspect]
     Indication: BLOOD PRESSURE
     Dosage: 40 MG, 2X/DAY
  3. ACCUPRIL [Suspect]
     Dosage: 40 MG, 1X/DAY
     Route: 048
  4. LYRICA [Suspect]
     Indication: NEUROPATHY PERIPHERAL
     Dosage: 150 MG, 3X/DAY
     Route: 048
  5. PROTONIX [Suspect]
     Dosage: 40 MG, 1X/DAY (AS NEEDED)
     Route: 048
  6. FUROSEMIDE [Concomitant]
     Indication: BLOOD PRESSURE
     Dosage: UNK , 1X/DAY
  7. ATENOLOL [Concomitant]
     Dosage: 25 MG, UNK
  8. KLOR-CON [Concomitant]
     Dosage: UNK, 2X/DAY
  9. ZANTAC [Concomitant]
     Dosage: 300 UG, 2X/DAY
  10. PRESERVISION VITAMINS [Concomitant]
     Dosage: UNK, 2 PER DAY
  11. CHONDROITIN/GLUCOSAMINE [Concomitant]
     Dosage: 1200/1500 MG
  12. FISH OIL [Concomitant]
     Dosage: 3000 MG, UNK
  13. CENTRUM SILVER [Concomitant]
     Dosage: UNK
  14. ACIDOPHILUS [Concomitant]
     Dosage: 14 BILLION UNITS, 2X/DAY
  15. HYDRODIURIL [Concomitant]
     Indication: LOCAL SWELLING
     Dosage: 25 MG, AS NEEDED
  16. RESVERATROL [Concomitant]
     Dosage: 150 MG, UNK
  17. SELENIUM [Concomitant]
     Dosage: 200 UG, UNK
  18. AXIRON [Concomitant]
     Dosage: 90 MG, DAILY (UNDERARM)
  19. SOYA LECITHIN [Concomitant]
     Dosage: 1200 MG, UNK
  20. PREDNISOLONE [Concomitant]
     Dosage: 1 %, 3X/DAY (BOTH EYES)
  21. KETOROLAC [Concomitant]
     Dosage: 2X/DAY (BOTH EYES)
  22. NASACORT AQ [Concomitant]
     Dosage: UNK, USED AS NEEDED

REACTIONS (4)
  - Retinal detachment [Recovered/Resolved]
  - Retinal detachment [Unknown]
  - Cataract [Unknown]
  - Cataract [Unknown]
